FAERS Safety Report 15893907 (Version 2)
Quarter: 2019Q1

REPORT INFORMATION
  Report Type: Report from Study
  Country: None (occurrence: US)
  Receive Date: 20190131
  Receipt Date: 20190304
  Transmission Date: 20190417
  Serious: Yes (Hospitalization, Other)
  Sender: FDA-Public Use
  Company Number: US-ABBVIE-19K-163-2644151-00

PATIENT
  Age: 39 Year
  Sex: Female
  Weight: 54.03 kg

DRUGS (16)
  1. TPN [Suspect]
     Active Substance: AMINO ACIDS\DEXTROSE\ELECTROLYTES NOS\SOYBEAN OIL
     Indication: VAGINAL FISTULA
     Route: 042
  2. NORCO [Concomitant]
     Active Substance: ACETAMINOPHEN\HYDROCODONE BITARTRATE
     Indication: PAIN
     Route: 065
  3. EPINEPHRINE. [Concomitant]
     Active Substance: EPINEPHRINE
     Indication: FOOD ALLERGY
     Route: 065
  4. HUMIRA [Suspect]
     Active Substance: ADALIMUMAB
     Route: 058
  5. FETZIMA [Concomitant]
     Active Substance: LEVOMILNACIPRAN HYDROCHLORIDE
     Indication: DEPRESSION
     Route: 065
  6. HUMIRA [Suspect]
     Active Substance: ADALIMUMAB
     Indication: CROHN^S DISEASE
     Route: 058
     Dates: start: 201812
  7. IMODIUM [Concomitant]
     Active Substance: LOPERAMIDE HYDROCHLORIDE
     Indication: DEHYDRATION
     Route: 065
  8. LORAZEPAM. [Concomitant]
     Active Substance: LORAZEPAM
     Indication: ANXIETY
     Route: 065
  9. ZEBETA [Concomitant]
     Active Substance: BISOPROLOL FUMARATE
     Indication: TACHYCARDIA
     Route: 065
  10. ZEBETA [Concomitant]
     Active Substance: BISOPROLOL FUMARATE
     Indication: DYSPNOEA EXERTIONAL
  11. ZOFRAN [Concomitant]
     Active Substance: ONDANSETRON HYDROCHLORIDE
     Indication: NAUSEA
     Route: 065
  12. ADDERALL [Concomitant]
     Active Substance: AMPHETAMINE ASPARTATE\AMPHETAMINE SULFATE\DEXTROAMPHETAMINE SACCHARATE\DEXTROAMPHETAMINE SULFATE
     Indication: ATTENTION DEFICIT/HYPERACTIVITY DISORDER
     Route: 065
  13. HUMIRA [Suspect]
     Active Substance: ADALIMUMAB
     Indication: CROHN^S DISEASE
     Route: 058
     Dates: start: 2006
  14. ACIPHEX [Concomitant]
     Active Substance: RABEPRAZOLE SODIUM
     Indication: DYSPHAGIA
  15. ACIPHEX [Concomitant]
     Active Substance: RABEPRAZOLE SODIUM
     Indication: GASTROOESOPHAGEAL REFLUX DISEASE
  16. ACIPHEX [Concomitant]
     Active Substance: RABEPRAZOLE SODIUM
     Indication: PHARYNGEAL INFLAMMATION

REACTIONS (23)
  - Vaginal haemorrhage [Recovered/Resolved]
  - Blood sodium decreased [Recovered/Resolved]
  - Dehydration [Recovered/Resolved]
  - Carpal tunnel syndrome [Recovering/Resolving]
  - Urinary tract infection [Recovered/Resolved]
  - Deep vein thrombosis [Recovered/Resolved]
  - Pain [Unknown]
  - Pain of skin [Recovered/Resolved]
  - Sepsis [Recovered/Resolved]
  - Dysphagia [Not Recovered/Not Resolved]
  - Trigger finger [Recovered/Resolved]
  - Hypotension [Recovered/Resolved]
  - Acute kidney injury [Recovered/Resolved]
  - Pain in extremity [Recovered/Resolved]
  - Ovarian cyst [Recovered/Resolved]
  - Oral candidiasis [Recovered/Resolved]
  - Crohn^s disease [Unknown]
  - Abdominal pain [Recovered/Resolved]
  - Pain [Recovered/Resolved]
  - Blister [Unknown]
  - Gallbladder hypofunction [Recovered/Resolved]
  - Vaginal fistula [Recovered/Resolved]
  - Peripheral swelling [Recovered/Resolved]

NARRATIVE: CASE EVENT DATE: 2010
